FAERS Safety Report 18553945 (Version 2)
Quarter: 2022Q3

REPORT INFORMATION
  Report Type: Spontaneous
  Country: CA (occurrence: CA)
  Receive Date: 20201127
  Receipt Date: 20220712
  Transmission Date: 20221027
  Serious: Yes (Other)
  Sender: FDA-Public Use
  Company Number: CA-GLAXOSMITHKLINE-CA2020GSK231299

PATIENT

DRUGS (2)
  1. AVANDIA [Suspect]
     Active Substance: ROSIGLITAZONE MALEATE
     Indication: Diabetes mellitus
     Dosage: 4 MG, QD
     Route: 048
     Dates: start: 20030721, end: 20040629
  2. AVANDIA [Suspect]
     Active Substance: ROSIGLITAZONE MALEATE
     Dosage: 8 MG, QD
     Route: 048
     Dates: start: 20040914, end: 20070125

REACTIONS (10)
  - Cardiac failure congestive [Unknown]
  - Myocardial infarction [Unknown]
  - Pulmonary valve incompetence [Unknown]
  - Myocardial ischaemia [Unknown]
  - Cardiac failure [Unknown]
  - Stent placement [Unknown]
  - Left atrial enlargement [Unknown]
  - Aortic valve sclerosis [Unknown]
  - Left ventricular dysfunction [Unknown]
  - Cardiomegaly [Unknown]
